FAERS Safety Report 26168916 (Version 1)
Quarter: 2025Q4

REPORT INFORMATION
  Report Type: Spontaneous
  Country: US (occurrence: US)
  Receive Date: 20251217
  Receipt Date: 20251217
  Transmission Date: 20260117
  Serious: Yes (Death, Hospitalization)
  Sender: MYLAN
  Company Number: US-MYLANLABS-2025M1106770

PATIENT
  Age: 6 Year
  Sex: Male

DRUGS (16)
  1. VANCOMYCIN [Suspect]
     Active Substance: VANCOMYCIN
     Indication: Antibiotic therapy
     Dosage: UNK
  2. VANCOMYCIN [Suspect]
     Active Substance: VANCOMYCIN
     Dosage: UNK
     Route: 065
  3. VANCOMYCIN [Suspect]
     Active Substance: VANCOMYCIN
     Dosage: UNK
     Route: 065
  4. VANCOMYCIN [Suspect]
     Active Substance: VANCOMYCIN
     Dosage: UNK
  5. CEFTRIAXONE [Suspect]
     Active Substance: CEFTRIAXONE
     Indication: Antibiotic therapy
     Dosage: UNK
  6. CEFTRIAXONE [Suspect]
     Active Substance: CEFTRIAXONE
     Dosage: UNK
     Route: 065
  7. CEFTRIAXONE [Suspect]
     Active Substance: CEFTRIAXONE
     Dosage: UNK
     Route: 065
  8. CEFTRIAXONE [Suspect]
     Active Substance: CEFTRIAXONE
     Dosage: UNK
  9. AMPICILLIN [Suspect]
     Active Substance: AMPICILLIN
     Indication: Beta haemolytic streptococcal infection
     Dosage: UNK
  10. AMPICILLIN [Suspect]
     Active Substance: AMPICILLIN
     Dosage: UNK
     Route: 065
  11. AMPICILLIN [Suspect]
     Active Substance: AMPICILLIN
     Dosage: UNK
     Route: 065
  12. AMPICILLIN [Suspect]
     Active Substance: AMPICILLIN
     Dosage: UNK
  13. GENTAMICIN [Suspect]
     Active Substance: GENTAMICIN
     Indication: Beta haemolytic streptococcal infection
     Dosage: UNK
  14. GENTAMICIN [Suspect]
     Active Substance: GENTAMICIN
     Dosage: UNK
     Route: 065
  15. GENTAMICIN [Suspect]
     Active Substance: GENTAMICIN
     Dosage: UNK
     Route: 065
  16. GENTAMICIN [Suspect]
     Active Substance: GENTAMICIN
     Dosage: UNK

REACTIONS (1)
  - Drug ineffective [Fatal]
